FAERS Safety Report 13103792 (Version 1)
Quarter: 2017Q1

REPORT INFORMATION
  Report Type: Spontaneous
  Country: US (occurrence: US)
  Receive Date: 20170111
  Receipt Date: 20170111
  Transmission Date: 20170428
  Serious: No
  Sender: FDA-Public Use
  Company Number: US-ASTRAZENECA-2017SE00835

PATIENT

DRUGS (17)
  1. LYRICA [Concomitant]
     Active Substance: PREGABALIN
     Dosage: 150 MG, 2X DAILY
     Route: 048
     Dates: start: 20161118
  2. PREMARIN [Concomitant]
     Active Substance: ESTROGENS, CONJUGATED
  3. NARITRIPTAN [Concomitant]
  4. MONTELUKAST [Concomitant]
     Active Substance: MONTELUKAST SODIUM
     Dosage: 10 MG NIGHTLY
  5. FLUCONOZOLE [Concomitant]
     Dosage: 100 MG 1X WEEKLY
  6. CLOBETASOL [Concomitant]
     Active Substance: CLOBETASOL
     Dosage: 0.5% OINTMENT
  7. ADVAIR HFA [Concomitant]
     Active Substance: FLUTICASONE PROPIONATE\SALMETEROL XINAFOATE
     Dosage: 250 AS NEEDED
  8. LYRIES [Concomitant]
  9. MAXALT [Concomitant]
     Active Substance: RIZATRIPTAN BENZOATE
  10. ALBERTOL [Concomitant]
  11. FLONASE [Concomitant]
     Active Substance: FLUTICASONE PROPIONATE
  12. AMLODOPINE [Concomitant]
     Active Substance: AMLODIPINE BESYLATE
  13. ATIVAN [Concomitant]
     Active Substance: LORAZEPAM
     Dosage: 1 MG NIGHTLY
  14. ACETAZOLAMIDE ER [Concomitant]
     Active Substance: ACETAZOLAMIDE
     Dosage: 500 MG, AS NEEDED
  15. CANDESARTAN [Suspect]
     Active Substance: CANDESARTAN
     Route: 048
  16. SUMATRIPTAN. [Concomitant]
     Active Substance: SUMATRIPTAN
  17. PREMARIN VAGINAL [Concomitant]
     Active Substance: ESTROGENS, CONJUGATED

REACTIONS (1)
  - Drug hypersensitivity [Unknown]
